FAERS Safety Report 16997518 (Version 1)
Quarter: 2019Q4

REPORT INFORMATION
  Report Type: Spontaneous
  Country: US (occurrence: US)
  Receive Date: 20190924
  Receipt Date: 20190924
  Transmission Date: 20200122
  Serious: No
  Sender: FDA-Public Use
  Company Number: None

PATIENT
  Age: 26 Year
  Sex: Female

DRUGS (1)
  1. COSENTYX [Suspect]
     Active Substance: SECUKINUMAB
     Dosage: ?90; OTHER
     Route: 058
     Dates: start: 201709

REACTIONS (3)
  - Wrong technique in device usage process [None]
  - Incorrect dose administered [None]
  - Therapeutic product effect decreased [None]

NARRATIVE: CASE EVENT DATE: 20190924
